FAERS Safety Report 6596098-5 (Version None)
Quarter: 2010Q1

REPORT INFORMATION
  Report Type: 
  Country: None (occurrence: None)
  Receive Date: 20100223
  Receipt Date: 20100212
  Transmission Date: 20100710
  Serious: Yes (Other)
  Sender: FDA-Public Use
  Company Number: US-PFIZER INC-2009240756

PATIENT
  Sex: Female

DRUGS (6)
  1. CADUET [Suspect]
     Dosage: 10/40 MG
  2. LIPITOR [Suspect]
     Dosage: UNK
     Dates: start: 20070901
  3. PLAVIX [Suspect]
     Dosage: UNK
     Dates: start: 20070901
  4. TOPROL-XL [Concomitant]
     Dosage: UNK
  5. CAPOTEN [Concomitant]
     Dosage: UNK
  6. ISMO [Concomitant]
     Dosage: 60 MG, UNK

REACTIONS (18)
  - ABASIA [None]
  - ACTIVITIES OF DAILY LIVING IMPAIRED [None]
  - ASTHENIA [None]
  - BLINDNESS [None]
  - BLOOD PRESSURE INCREASED [None]
  - CARDIAC OPERATION [None]
  - EYE HAEMORRHAGE [None]
  - FALL [None]
  - FEELING DRUNK [None]
  - HEAT EXHAUSTION [None]
  - HEAT STROKE [None]
  - HYPERHIDROSIS [None]
  - MALAISE [None]
  - OCULAR VASCULAR DISORDER [None]
  - PAIN IN EXTREMITY [None]
  - SYNCOPE [None]
  - VISION BLURRED [None]
  - VISUAL IMPAIRMENT [None]
